FAERS Safety Report 5510212-1 (Version None)
Quarter: 2007Q4

REPORT INFORMATION
  Report Type: 
  Country: None (occurrence: None)
  Receive Date: 20071108
  Receipt Date: 20071024
  Transmission Date: 20080405
  Serious: Yes (Hospitalization)
  Sender: FDA-Public Use
  Company Number: GB-ELI_LILLY_AND_COMPANY-GB200710006531

PATIENT
  Sex: Female

DRUGS (5)
  1. EXENATIDE [Suspect]
     Dosage: 5 UG, UNKNOWN
     Route: 065
     Dates: start: 20070316, end: 20070412
  2. EXENATIDE [Suspect]
     Dosage: 10 UG, UNKNOWN
     Route: 065
     Dates: start: 20070413
  3. METFORMIN HCL [Concomitant]
     Dosage: 2000 MG, DAILY (1/D)
     Route: 048
     Dates: start: 20031124, end: 20071009
  4. METFORMIN HCL [Concomitant]
     Dosage: 2000 MG, DAILY (1/D)
     Route: 048
     Dates: start: 20071011
  5. SIMVASTATIN [Concomitant]
     Indication: HYPERLIPIDAEMIA
     Dosage: 20 MG, DAILY (1/D)
     Route: 048
     Dates: start: 20060301

REACTIONS (5)
  - ARTHRALGIA [None]
  - DIPLOPIA [None]
  - HEADACHE [None]
  - LETHARGY [None]
  - MALAISE [None]
